FAERS Safety Report 10084838 (Version 1)
Quarter: 2014Q2

REPORT INFORMATION
  Report Type: Spontaneous
  Country: FR (occurrence: FR)
  Receive Date: 20140417
  Receipt Date: 20140417
  Transmission Date: 20141212
  Serious: Yes (Hospitalization)
  Sender: FDA-Public Use
  Company Number: FR-ELI_LILLY_AND_COMPANY-FR201404003753

PATIENT
  Age: 66 Year
  Sex: Female

DRUGS (2)
  1. OPTRUMA [Suspect]
     Indication: OSTEOPOROSIS PROPHYLAXIS
     Dosage: UNK UNK, UNKNOWN
     Route: 048
     Dates: start: 2006
  2. LEVOTHYROX [Concomitant]
     Indication: GOITRE
     Dosage: UNK, UNKNOWN
     Route: 065

REACTIONS (1)
  - Amnestic disorder [Recovered/Resolved]
